FAERS Safety Report 14109634 (Version 3)
Quarter: 2017Q4

REPORT INFORMATION
  Report Type: Report from Study
  Country: None (occurrence: ES)
  Receive Date: 20171020
  Receipt Date: 20171124
  Transmission Date: 20180321
  Serious: Yes (Life-Threatening, Hospitalization, Other)
  Sender: FDA-Public Use
  Company Number: ES-ABBVIE-17K-144-2133616-00

PATIENT
  Age: 69 Year
  Sex: Male
  Weight: 86 kg

DRUGS (3)
  1. DUODOPA [Suspect]
     Active Substance: CARBIDOPA\LEVODOPA
     Indication: PARKINSON^S DISEASE
     Route: 050
     Dates: start: 20171016
  2. QUETIAPINE. [Concomitant]
     Active Substance: QUETIAPINE
     Indication: SEDATION
     Route: 042
  3. PROPOFOL. [Concomitant]
     Active Substance: PROPOFOL
     Indication: SEDATION
     Route: 042

REACTIONS (7)
  - Hypoxia [Recovered/Resolved]
  - Mechanical ventilation complication [Recovered/Resolved]
  - Lung disorder [Recovered/Resolved]
  - Transaminases increased [Recovering/Resolving]
  - Stress [Recovered/Resolved]
  - Procedural pain [Recovered/Resolved]
  - Respiratory disorder [Recovered/Resolved]

NARRATIVE: CASE EVENT DATE: 20171016
